FAERS Safety Report 17285119 (Version 1)
Quarter: 2020Q1

REPORT INFORMATION
  Report Type: Spontaneous
  Country: US (occurrence: US)
  Receive Date: 20200117
  Receipt Date: 20200117
  Transmission Date: 20200409
  Serious: No
  Sender: FDA-Public Use
  Company Number: US-TARO-2018TAR00903

PATIENT
  Age: 27 Year
  Sex: Female
  Weight: 77.1 kg

DRUGS (2)
  1. UNSPECIFIED WHITE PILL [Suspect]
     Active Substance: UNSPECIFIED INGREDIENT
     Indication: VULVOVAGINAL MYCOTIC INFECTION
     Dosage: 1 TABLETS, ONCE
     Dates: start: 20181219, end: 20181219
  2. CLOTRIMAZOLE VAGINAL CREAM USP 1% 7 DAY [Suspect]
     Active Substance: CLOTRIMAZOLE
     Indication: VULVOVAGINAL MYCOTIC INFECTION
     Dosage: 1 APPLICATOR, 1X/DAY AT BEDTIME
     Route: 067
     Dates: start: 20181219

REACTIONS (2)
  - Vaginal discharge [Unknown]
  - Vaginal odour [Not Recovered/Not Resolved]

NARRATIVE: CASE EVENT DATE: 20181220
